FAERS Safety Report 16599444 (Version 1)
Quarter: 2019Q3

REPORT INFORMATION
  Report Type: Report from Study
  Country: None (occurrence: CO)
  Receive Date: 20190719
  Receipt Date: 20190719
  Transmission Date: 20191004
  Serious: Yes (Other)
  Sender: FDA-Public Use
  Company Number: CO-ABBVIE-19K-036-2860469-00

PATIENT
  Age: 55 Year
  Sex: Female
  Weight: 87 kg

DRUGS (2)
  1. HUMIRA [Suspect]
     Active Substance: ADALIMUMAB
     Indication: PRODUCT USED FOR UNKNOWN INDICATION
     Route: 058
     Dates: start: 20130712
  2. HUMIRA [Suspect]
     Active Substance: ADALIMUMAB
     Indication: PSORIASIS
     Route: 058

REACTIONS (6)
  - Inflammation [Recovering/Resolving]
  - Inflammation [Recovering/Resolving]
  - Viral pharyngitis [Recovering/Resolving]
  - Influenza [Recovering/Resolving]
  - Ocular hyperaemia [Recovering/Resolving]
  - Peripheral venous disease [Recovering/Resolving]

NARRATIVE: CASE EVENT DATE: 2018
